FAERS Safety Report 22044512 (Version 1)
Quarter: 2023Q1

REPORT INFORMATION
  Report Type: Spontaneous
  Country: US (occurrence: US)
  Receive Date: 20230228
  Receipt Date: 20230228
  Transmission Date: 20230418
  Serious: Yes (Hospitalization)
  Sender: FDA-Public Use
  Company Number: US-drreddys-LIT/USA/23/0161719

PATIENT
  Age: 33 Year
  Sex: Male

DRUGS (3)
  1. OLANZAPINE [Suspect]
     Active Substance: OLANZAPINE
     Indication: Schizophrenia
  2. FLUPHENAZINE [Suspect]
     Active Substance: FLUPHENAZINE
     Indication: Schizophrenia
  3. FLUPHENAZINE [Suspect]
     Active Substance: FLUPHENAZINE
     Route: 048

REACTIONS (1)
  - Priapism [Unknown]
